FAERS Safety Report 6108685-9 (Version None)
Quarter: 2009Q1

REPORT INFORMATION
  Report Type: 
  Country: None (occurrence: None)
  Receive Date: 20090305
  Receipt Date: 20090223
  Transmission Date: 20090719
  Serious: Yes (Life-Threatening, Hospitalization)
  Sender: FDA-Public Use
  Company Number: FR-JNJFOC-20080203741

PATIENT
  Age: 73 Year
  Sex: Male

DRUGS (3)
  1. DECITABINE     (DECITABINE) LYOPHILIZED POWDER [Suspect]
     Indication: ACUTE MYELOID LEUKAEMIA
     Dosage: 20 MG/M2, 1 IN 1 DAY, INTRAVENOUS
     Route: 042
     Dates: start: 20070430, end: 20080321
  2. IRBESARTAN [Concomitant]
  3. ACEBUTOLOL [Concomitant]

REACTIONS (2)
  - HEADACHE [None]
  - OTITIS EXTERNA [None]
